FAERS Safety Report 9754241 (Version 2)
Quarter: 2013Q4

REPORT INFORMATION
  Report Type: Spontaneous
  Country: US (occurrence: US)
  Receive Date: 20131213
  Receipt Date: 20131216
  Transmission Date: 20140711
  Serious: Yes (Other)
  Sender: FDA-Public Use
  Company Number: US-TEVA-408276USA

PATIENT
  Age: 27 Year
  Sex: Female
  Weight: 49.94 kg

DRUGS (3)
  1. PARAGARD 380A [Suspect]
     Indication: CONTRACEPTION
     Route: 015
     Dates: start: 20130329, end: 20130524
  2. PARAGARD 380A [Suspect]
     Route: 015
     Dates: start: 20130524
  3. ATIVAN [Concomitant]
     Indication: ANXIETY
     Dates: start: 20130516

REACTIONS (5)
  - Embedded device [Recovered/Resolved with Sequelae]
  - Device dislocation [Recovered/Resolved with Sequelae]
  - Ovarian cyst [Unknown]
  - Metrorrhagia [Unknown]
  - Menstruation irregular [Unknown]
